FAERS Safety Report 9528568 (Version 2)
Quarter: 2013Q4

REPORT INFORMATION
  Report Type: Spontaneous
  Country: US (occurrence: US)
  Receive Date: 20130917
  Receipt Date: 20131204
  Transmission Date: 20140711
  Serious: Yes (Other)
  Sender: FDA-Public Use
  Company Number: US-PERRIGO-13US009243

PATIENT
  Age: 26 Year
  Sex: Female
  Weight: 77.1 kg

DRUGS (2)
  1. MINOXIDIL 5% 30DAY 798 [Suspect]
     Indication: PRODUCT USED FOR UNKNOWN INDICATION
     Dosage: UNK, UNK
     Route: 061
     Dates: start: 20130806, end: 20130830
  2. MINOXIDIL 5% 30DAY 798 [Suspect]
     Dosage: UNK
     Route: 061
     Dates: start: 20130831

REACTIONS (9)
  - Asthma [Recovering/Resolving]
  - Dyspnoea [Recovering/Resolving]
  - Blood pressure increased [Recovering/Resolving]
  - Heart rate increased [Recovering/Resolving]
  - Swelling face [Recovering/Resolving]
  - Chest discomfort [Recovered/Resolved]
  - Rebound effect [Recovering/Resolving]
  - Anxiety [Recovering/Resolving]
  - Off label use [Not Recovered/Not Resolved]
